FAERS Safety Report 22536259 (Version 1)
Quarter: 2023Q2

REPORT INFORMATION
  Report Type: Spontaneous
  Country: CN (occurrence: CN)
  Receive Date: 20230608
  Receipt Date: 20230608
  Transmission Date: 20230721
  Serious: Yes (Life-Threatening, Hospitalization, Other)
  Sender: FDA-Public Use
  Company Number: CN-PFIZER INC-PV202300099917

PATIENT
  Age: 72 Year
  Sex: Male

DRUGS (2)
  1. METHYLPREDNISOLONE SODIUM SUCCINATE [Suspect]
     Active Substance: METHYLPREDNISOLONE SODIUM SUCCINATE
     Indication: Lung neoplasm malignant
     Dosage: 240 MG, 1X/DAY
     Dates: start: 20210216
  2. ENOXAPARIN SODIUM [Concomitant]
     Active Substance: ENOXAPARIN SODIUM
     Indication: Lung neoplasm malignant
     Dosage: 4000 U, 1X/DAY
     Dates: start: 20210216

REACTIONS (3)
  - Pneumonitis [Recovered/Resolved]
  - Pneumonia acinetobacter [Recovered/Resolved]
  - Pneumonia fungal [Recovered/Resolved]
